FAERS Safety Report 10899478 (Version 2)
Quarter: 2015Q1

REPORT INFORMATION
  Report Type: Spontaneous
  Country: US (occurrence: US)
  Receive Date: 20150309
  Receipt Date: 20150313
  Transmission Date: 20150721
  Serious: No
  Sender: FDA-Public Use
  Company Number: US-PFIZER INC-2015082419

PATIENT
  Sex: Female

DRUGS (1)
  1. CELEBREX [Suspect]
     Active Substance: CELECOXIB
     Indication: EYELID OPERATION
     Dosage: 3 DF
     Dates: start: 20150303, end: 20150304

REACTIONS (6)
  - Hypoaesthesia [Recovered/Resolved]
  - Flushing [Unknown]
  - Paraesthesia [Recovered/Resolved]
  - Product use issue [Unknown]
  - Swelling face [Unknown]
  - Erythema [Unknown]

NARRATIVE: CASE EVENT DATE: 201503
